FAERS Safety Report 8847631 (Version 1)
Quarter: 2012Q4

REPORT INFORMATION
  Report Type: 
  Country: GB (occurrence: GB)
  Receive Date: 20121018
  Receipt Date: 20121018
  Transmission Date: 20130627
  Serious: Yes (Other)
  Sender: FDA-Public Use
  Company Number: GB-ELI_LILLY_AND_COMPANY-GB201208003930

PATIENT
  Age: 69 Year
  Sex: Female
  Weight: 83 kg

DRUGS (13)
  1. BYETTA [Suspect]
     Indication: DIABETES MELLITUS
     Dosage: 5 ug, bid
     Route: 058
     Dates: start: 20120716
  2. BYETTA [Suspect]
     Dosage: 10 ug, UNK
     Dates: start: 201207, end: 20120806
  3. AMLODIPINE [Concomitant]
     Dosage: UNK, unknown
  4. ASPIRIN [Concomitant]
     Dosage: UNK, unknown
     Route: 048
  5. ATORVASTATIN [Concomitant]
     Dosage: UNK, unknown
  6. CANDESARTAN [Concomitant]
     Dosage: UNK, unknown
     Route: 048
  7. CARBOMER [Concomitant]
     Dosage: UNK, unknown
  8. CO-CODAMOL [Concomitant]
     Dosage: UNK, unknown
  9. GLICLAZIDE [Concomitant]
     Indication: DIABETES MELLITUS
     Dosage: UNK, unknown
     Route: 048
  10. METFORMIN [Concomitant]
     Indication: DIABETES MELLITUS
     Dosage: UNK, unknown
  11. MOMETASONE FUROATE [Concomitant]
     Dosage: UNK, unknown
  12. RABEPRAZOLE [Concomitant]
     Dosage: UNK, unknown
     Route: 048
  13. SODIUM CROMOGLYCATE [Concomitant]
     Dosage: UNK, unknown

REACTIONS (4)
  - Gastrointestinal haemorrhage [Unknown]
  - Faeces discoloured [Recovered/Resolved]
  - Fatigue [Recovered/Resolved]
  - Abdominal pain upper [Recovered/Resolved]
